FAERS Safety Report 8237963-2 (Version None)
Quarter: 2012Q1

REPORT INFORMATION
  Report Type: 
  Country: None (occurrence: None)
  Receive Date: 20120323
  Receipt Date: 20120316
  Transmission Date: 20120608
  Serious: Yes (Life-Threatening, Hospitalization)
  Sender: FDA-Public Use
  Company Number: 2012SP014867

PATIENT
  Age: 59 Year
  Sex: Male

DRUGS (6)
  1. VICTRELIS [Suspect]
     Indication: HEPATITIS C
     Dosage: 800 MG;PO
     Route: 048
     Dates: start: 20111212, end: 20120313
  2. RIBAVIRIN [Suspect]
     Indication: HEPATITIS C
     Dosage: 1000 MG;QD;PO
     Route: 048
     Dates: start: 20111107, end: 20120313
  3. PEGASYS [Suspect]
     Indication: HEPATITIS C
     Dosage: 180 MCG;QW;SC
     Route: 058
     Dates: start: 20111107, end: 20120313
  4. DIAZEPAM [Concomitant]
  5. NADOL [Concomitant]
  6. EPREX [Concomitant]

REACTIONS (5)
  - LOSS OF CONSCIOUSNESS [None]
  - ANAEMIA [None]
  - ASCITES [None]
  - PLATELET COUNT DECREASED [None]
  - KETOACIDOSIS [None]
